FAERS Safety Report 12481466 (Version 1)
Quarter: 2016Q2

REPORT INFORMATION
  Report Type: Spontaneous
  Country: US (occurrence: US)
  Receive Date: 20160620
  Receipt Date: 20160620
  Transmission Date: 20160815
  Serious: No
  Sender: FDA-Public Use
  Company Number: US-GLAXOSMITHKLINE-US2016GSK080857

PATIENT
  Age: 62 Year
  Sex: Male

DRUGS (2)
  1. REQUIP XL [Suspect]
     Active Substance: ROPINIROLE HYDROCHLORIDE
     Indication: PARKINSON^S DISEASE
     Dosage: 8 MG TABLETS UNK, U
     Dates: start: 2013
  2. REQUIP XL [Suspect]
     Active Substance: ROPINIROLE HYDROCHLORIDE
     Dosage: 4 MG TABLETS UNK, U
     Dates: start: 2014

REACTIONS (1)
  - Lethargy [Unknown]

NARRATIVE: CASE EVENT DATE: 20160602
